FAERS Safety Report 4660004-0 (Version None)
Quarter: 2005Q2

REPORT INFORMATION
  Report Type: 
  Country: None (occurrence: None)
  Receive Date: 20050421
  Receipt Date: 20050314
  Transmission Date: 20051028
  Serious: Yes (Other)
  Sender: FDA-Public Use
  Company Number: 2005017319

PATIENT
  Age: 43 Year
  Sex: Male

DRUGS (3)
  1. RELPAX [Suspect]
     Indication: MIGRAINE
     Dosage: (DAILY), ORAL
     Route: 048
     Dates: start: 20040201, end: 20041201
  2. TRAZODONE HCL [Concomitant]
  3. RABEPRAZOLE SODIUM [Concomitant]

REACTIONS (5)
  - CHEST DISCOMFORT [None]
  - MUSCLE TIGHTNESS [None]
  - NECK PAIN [None]
  - PAIN IN EXTREMITY [None]
  - SHOULDER PAIN [None]
